FAERS Safety Report 5011331-9 (Version None)
Quarter: 2006Q2

REPORT INFORMATION
  Report Type: 
  Country: None (occurrence: None)
  Receive Date: 20060404
  Receipt Date: 20060109
  Transmission Date: 20061013
  Serious: No
  Sender: FDA-Public Use
  Company Number: US200601001353

PATIENT
  Sex: Male

DRUGS (2)
  1. CYMBALTA [Suspect]
     Indication: BACK PAIN
     Dosage: 60 MG
     Dates: start: 20051201
  2. ANALGESIC AGENT LY027094 (ANALGESIC AGENT LY027094 UNKNOWN FORMULATION [Concomitant]

REACTIONS (4)
  - DEPRESSION [None]
  - DRUG INEFFECTIVE [None]
  - HYPERHIDROSIS [None]
  - IRRITABILITY [None]
